FAERS Safety Report 8017507-0 (Version None)
Quarter: 2011Q4

REPORT INFORMATION
  Report Type: 
  Country: None (occurrence: None)
  Receive Date: 20111228
  Receipt Date: 20111228
  Transmission Date: 20120403
  Serious: Yes (Hospitalization)
  Sender: FDA-Public Use
  Company Number: None

PATIENT
  Age: 78 Year
  Sex: Male
  Weight: 77.5651 kg

DRUGS (1)
  1. PRADAXA [Suspect]
     Dosage: 150 MG TWICE/DAY

REACTIONS (1)
  - PAIN [None]
